FAERS Safety Report 7507669-3 (Version None)
Quarter: 2011Q2

REPORT INFORMATION
  Report Type: 
  Country: None (occurrence: None)
  Receive Date: 20110527
  Receipt Date: 20110519
  Transmission Date: 20111010
  Serious: Yes (Hospitalization)
  Sender: FDA-Public Use
  Company Number: US-BIOGENIDEC-2011BI016780

PATIENT
  Age: 65 Year
  Sex: Female

DRUGS (1)
  1. TYSABRI [Suspect]
     Indication: MULTIPLE SCLEROSIS
     Route: 042
     Dates: start: 20061010

REACTIONS (6)
  - ABASIA [None]
  - HALLUCINATION [None]
  - FALL [None]
  - PELVIC PAIN [None]
  - PELVIC FRACTURE [None]
  - CONSTIPATION [None]
